FAERS Safety Report 15768253 (Version 6)
Quarter: 2019Q2

REPORT INFORMATION
  Report Type: Report from Study
  Country: HK (occurrence: HK)
  Receive Date: 20181227
  Receipt Date: 20190415
  Transmission Date: 20190711
  Serious: Yes (Death, Life-Threatening, Hospitalization, Other)
  Sender: FDA-Public Use
  Company Number: HK-PFIZER INC-2018528934

PATIENT
  Age: 56 Year
  Sex: Male
  Weight: 56.5 kg

DRUGS (9)
  1. VOLTAREN [Concomitant]
     Active Substance: DICLOFENAC SODIUM
     Indication: MUSCULOSKELETAL PAIN
     Dosage: 50 MG, 2X/DAY
     Route: 048
     Dates: start: 20181114, end: 20181120
  2. DACOMITINIB [Suspect]
     Active Substance: DACOMITINIB
     Dosage: 30 MG, DAILY
     Route: 048
     Dates: start: 20181219, end: 20181220
  3. DACOMITINIB [Suspect]
     Active Substance: DACOMITINIB
     Indication: LUNG NEOPLASM MALIGNANT
     Dosage: 45 MG, DAILY
     Route: 048
     Dates: start: 20181031, end: 20181124
  4. PEPCIDINE [Concomitant]
     Active Substance: FAMOTIDINE
     Indication: PROPHYLAXIS AGAINST GASTROINTESTINAL ULCER
     Dosage: 20 MG, 2X/DAY
     Route: 048
     Dates: start: 20181114, end: 20181120
  5. ENTECAVIR. [Concomitant]
     Active Substance: ENTECAVIR
     Indication: HEPATITIS B REACTIVATION
     Dosage: 0.5 MG, DAILY
     Route: 048
     Dates: start: 20181114
  6. IMOVANE [Concomitant]
     Active Substance: ZOPICLONE
     Indication: INSOMNIA
     Dosage: 7.5 MG, DAILY, BED TIME
     Route: 048
     Dates: start: 20181114, end: 20181123
  7. DACOMITINIB [Suspect]
     Active Substance: DACOMITINIB
     Dosage: 30 MG, DAILY
     Route: 048
     Dates: start: 20181224, end: 20181227
  8. METFORMIN [Concomitant]
     Active Substance: METFORMIN HYDROCHLORIDE
     Indication: DIABETES MELLITUS
     Dosage: 250 MG, 2X/DAY
     Route: 048
     Dates: start: 20181213
  9. VITAMIN K1 [Concomitant]
     Active Substance: PHYTONADIONE
     Indication: INTERNATIONAL NORMALISED RATIO
     Dosage: 5 MG, DAILY
     Route: 048
     Dates: start: 20181213

REACTIONS (10)
  - Ascites [Recovered/Resolved]
  - Pericardial effusion [Recovered/Resolved]
  - Pulmonary embolism [Fatal]
  - Pleural effusion [Recovered/Resolved with Sequelae]
  - Neoplasm progression [Fatal]
  - Renal disorder [Recovered/Resolved]
  - Lower respiratory tract infection [Recovering/Resolving]
  - Hepatic function abnormal [Recovering/Resolving]
  - Cardio-respiratory arrest [Fatal]
  - Cardiac tamponade [Recovered/Resolved]

NARRATIVE: CASE EVENT DATE: 20181124
